FAERS Safety Report 23241713 (Version 2)
Quarter: 2023Q4

REPORT INFORMATION
  Report Type: Spontaneous
  Country: NL (occurrence: NL)
  Receive Date: 20231129
  Receipt Date: 20231221
  Transmission Date: 20240110
  Serious: Yes (Other)
  Sender: FDA-Public Use
  Company Number: None

PATIENT
  Age: 39 Year
  Sex: Female
  Weight: 75 kg

DRUGS (2)
  1. MIRENA [Suspect]
     Active Substance: LEVONORGESTREL
     Indication: Menstrual discomfort
     Dosage: 20?G/DAY
     Route: 015
     Dates: start: 20230905
  2. MIRENA [Suspect]
     Active Substance: LEVONORGESTREL
     Indication: Heavy menstrual bleeding

REACTIONS (17)
  - Suicidal ideation [Not Recovered/Not Resolved]
  - Depressed mood [Not Recovered/Not Resolved]
  - Contact lens intolerance [Not Recovered/Not Resolved]
  - Bacterial vulvovaginitis [Recovering/Resolving]
  - Blood pressure increased [Not Recovered/Not Resolved]
  - Mood swings [Not Recovered/Not Resolved]
  - Thirst [Recovering/Resolving]
  - Dry mouth [Recovering/Resolving]
  - Headache [Not Recovered/Not Resolved]
  - Anger [Not Recovered/Not Resolved]
  - Furuncle [Not Recovered/Not Resolved]
  - Heavy menstrual bleeding [Recovering/Resolving]
  - Eye pain [Not Recovered/Not Resolved]
  - Dry eye [Not Recovered/Not Resolved]
  - Eye irritation [Not Recovered/Not Resolved]
  - Mood altered [Not Recovered/Not Resolved]
  - Acne [Not Recovered/Not Resolved]
